FAERS Safety Report 6036020-3 (Version None)
Quarter: 2009Q1

REPORT INFORMATION
  Report Type: 
  Country: None (occurrence: None)
  Receive Date: 20090113
  Receipt Date: 20081215
  Transmission Date: 20090719
  Serious: Yes (Hospitalization)
  Sender: FDA-Public Use
  Company Number: BE-SANOFI-SYNTHELABO-A01200900091

PATIENT
  Age: 71 Year
  Sex: Male

DRUGS (1)
  1. PLAVIX [Suspect]
     Indication: STENT PLACEMENT
     Dosage: UNK
     Route: 048
     Dates: start: 20081119

REACTIONS (3)
  - ARTERIAL STENOSIS LIMB [None]
  - PAIN IN EXTREMITY [None]
  - PETECHIAE [None]
